FAERS Safety Report 10704197 (Version 1)
Quarter: 2015Q1

REPORT INFORMATION
  Report Type: Spontaneous
  Country: US (occurrence: None)
  Receive Date: 20150109
  Receipt Date: 20150109
  Transmission Date: 20150721
  Serious: Yes (Other)
  Sender: FDA-Public Use
  Company Number: None

PATIENT
  Age: 72 Year
  Sex: Female

DRUGS (1)
  1. BARACLUDE [Suspect]
     Active Substance: ENTECAVIR
     Indication: CHRONIC HEPATITIS B
     Dosage: STRENGTH: 0.5, DOSE FORM: ORAL, FREQUENCY: DAILY, ROUTE: ORAL 047
     Route: 048
     Dates: start: 201409

REACTIONS (1)
  - Alopecia [None]

NARRATIVE: CASE EVENT DATE: 20150106
